FAERS Safety Report 10620633 (Version 2)
Quarter: 2014Q4

REPORT INFORMATION
  Report Type: Spontaneous
  Country: FI (occurrence: FI)
  Receive Date: 20141202
  Receipt Date: 20141218
  Transmission Date: 20150529
  Serious: Yes (Hospitalization, Other)
  Sender: FDA-Public Use
  Company Number: FI-ROCHE-1497545

PATIENT
  Age: 66 Year
  Sex: Female

DRUGS (5)
  1. SIMVASTATIN. [Concomitant]
     Active Substance: SIMVASTATIN
  2. PERJETA [Suspect]
     Active Substance: PERTUZUMAB
     Indication: HER-2 POSITIVE BREAST CANCER
     Dosage: TOTALLY SEVEN CYCLES
     Route: 065
     Dates: start: 20140512, end: 20141022
  3. PRIMASPAN [Concomitant]
  4. HERCEPTIN [Suspect]
     Active Substance: TRASTUZUMAB
     Indication: HER-2 POSITIVE BREAST CANCER
     Dosage: TOTALLY SEVEN CYCLES
     Route: 065
     Dates: start: 20140512, end: 20141022
  5. DOCETAXEL. [Concomitant]
     Active Substance: DOCETAXEL
     Indication: HER-2 POSITIVE BREAST CANCER
     Dosage: TOTALLY SEVEN CYCLES
     Route: 065
     Dates: start: 20140512, end: 20140924

REACTIONS (5)
  - Erysipelas [Recovered/Resolved]
  - Metastases to liver [Unknown]
  - Metastases to skin [Unknown]
  - Disease progression [Unknown]
  - Hypokalaemia [Recovered/Resolved]

NARRATIVE: CASE EVENT DATE: 201410
